FAERS Safety Report 7538809-8 (Version None)
Quarter: 2011Q2

REPORT INFORMATION
  Report Type: 
  Country: None (occurrence: None)
  Receive Date: 20110610
  Receipt Date: 20090822
  Transmission Date: 20111010
  Serious: Yes (Hospitalization)
  Sender: FDA-Public Use
  Company Number: US-BAYER-200930657NA

PATIENT
  Age: 44 Year
  Sex: Female

DRUGS (11)
  1. TRASYLOL [Suspect]
     Indication: HEART AND LUNG TRANSPLANT
     Route: 042
     Dates: start: 20031121
  2. TRASYLOL [Suspect]
     Indication: AORTIC SURGERY
  3. HYDROCHLOROTHIAZIDE [Concomitant]
     Dosage: UNK
     Dates: start: 20000101
  4. GANCICLOVIR [Concomitant]
     Dosage: UNK
     Dates: start: 20031101
  5. PROTAMINE SULFATE [Concomitant]
     Dosage: UNK
     Dates: start: 20031121
  6. CEFAZOLIN [Concomitant]
     Dosage: UNK
     Dates: start: 20031101, end: 20031127
  7. LEVOPHED [Concomitant]
     Dosage: UNK
     Dates: start: 20031121
  8. COUMADIN [Concomitant]
     Dosage: UNK
     Dates: start: 19900101
  9. EPINEPHRINE [Concomitant]
     Dosage: UNK
     Dates: start: 20031121
  10. MILRINONE [Concomitant]
     Dosage: UNK
     Dates: start: 20031121
  11. ZOSYN [Concomitant]
     Dosage: UNK
     Dates: start: 20031128

REACTIONS (5)
  - RENAL FAILURE ACUTE [None]
  - PAIN [None]
  - UNEVALUABLE EVENT [None]
  - RENAL FAILURE [None]
  - INJURY [None]
